FAERS Safety Report 9279992 (Version 1)
Quarter: 2013Q2

REPORT INFORMATION
  Report Type: Spontaneous
  Country: US (occurrence: None)
  Receive Date: 20130506
  Receipt Date: 20130506
  Transmission Date: 20140414
  Serious: Yes (Hospitalization)
  Sender: FDA-Public Use
  Company Number: None

PATIENT
  Age: 65 Year
  Sex: Male

DRUGS (1)
  1. GENTAMICIN [Suspect]
     Dosage: 100MG  IV  X 1
     Route: 042
     Dates: start: 20121218, end: 20121218

REACTIONS (1)
  - Renal failure [None]
